FAERS Safety Report 5341415-7 (Version None)
Quarter: 2007Q2

REPORT INFORMATION
  Report Type: 
  Country: None (occurrence: None)
  Receive Date: 20070529
  Receipt Date: 20070529
  Transmission Date: 20071010
  Serious: Yes (Other)
  Sender: FDA-Public Use
  Company Number: None

PATIENT
  Age: 50 Year
  Sex: Female
  Weight: 72.5755 kg

DRUGS (1)
  1. ELLENCE [Suspect]
     Dosage: 108MG/154ML NS ONCE IV DRIP
     Route: 041

REACTIONS (5)
  - ACCIDENTAL EXPOSURE [None]
  - CONJUNCTIVITIS [None]
  - EYE IRRITATION [None]
  - MEDICATION ERROR [None]
  - OCCUPATIONAL EXPOSURE TO TOXIC AGENT [None]
